FAERS Safety Report 15220260 (Version 1)
Quarter: 2018Q3

REPORT INFORMATION
  Report Type: Spontaneous
  Country: US (occurrence: US)
  Receive Date: 20180731
  Receipt Date: 20180731
  Transmission Date: 20181010
  Serious: Yes (Hospitalization)
  Sender: FDA-Public Use
  Company Number: US-EMMAUS MEDICAL, INC.-EMM201805-000107

PATIENT
  Sex: Female

DRUGS (16)
  1. ENDARI [Suspect]
     Active Substance: GLUTAMINE
     Indication: SICKLE CELL DISEASE
     Route: 048
     Dates: start: 20180309
  2. VITAMIN D3 [Concomitant]
     Active Substance: CHOLECALCIFEROL
  3. RANITIDINE. [Concomitant]
     Active Substance: RANITIDINE
  4. TRAMADOL. [Concomitant]
     Active Substance: TRAMADOL
  5. FOLIC ACID. [Concomitant]
     Active Substance: FOLIC ACID
  6. FLONASE [Concomitant]
     Active Substance: FLUTICASONE PROPIONATE
  7. HYDROXYUREA. [Concomitant]
     Active Substance: HYDROXYUREA
  8. HYDROCODONE [Concomitant]
     Active Substance: HYDROCODONE
  9. MULTIVITAMIN [Concomitant]
     Active Substance: VITAMINS
  10. WARFARIN [Concomitant]
     Active Substance: WARFARIN
  11. OXYCODONE [Concomitant]
     Active Substance: OXYCODONE
  12. MORPHINE SULPHATE [Concomitant]
     Active Substance: MORPHINE SULFATE
  13. SENOKOT?S [Concomitant]
     Active Substance: DOCUSATE SODIUM\SENNOSIDES
  14. LANSOPRAZOLE. [Concomitant]
     Active Substance: LANSOPRAZOLE
  15. FISH OIL [Concomitant]
     Active Substance: FISH OIL
  16. IBUPROFEN. [Concomitant]
     Active Substance: IBUPROFEN

REACTIONS (2)
  - Adverse event [Unknown]
  - Underdose [Unknown]
